FAERS Safety Report 11591898 (Version 5)
Quarter: 2015Q4

REPORT INFORMATION
  Report Type: Spontaneous
  Country: US (occurrence: US)
  Receive Date: 20151005
  Receipt Date: 20151028
  Transmission Date: 20160304
  Serious: Yes (Other)
  Sender: FDA-Public Use
  Company Number: US-AMGEN-USASP2015101682

PATIENT
  Age: 93 Year
  Sex: Male

DRUGS (6)
  1. XGEVA [Suspect]
     Active Substance: DENOSUMAB
     Indication: PROPHYLAXIS
     Dosage: UNK, QMO
     Route: 065
     Dates: start: 2013
  2. XTANDI [Suspect]
     Active Substance: ENZALUTAMIDE
     Indication: PRODUCT USED FOR UNKNOWN INDICATION
     Route: 065
  3. CALCIUM [Concomitant]
     Active Substance: CALCIUM
     Dosage: UNK
  4. ZYTIGA [Suspect]
     Active Substance: ABIRATERONE ACETATE
     Indication: PRODUCT USED FOR UNKNOWN INDICATION
  5. ORGANIC SILICA [Concomitant]
     Dosage: UNK
  6. PREDNISONE. [Concomitant]
     Active Substance: PREDNISONE

REACTIONS (12)
  - Gait disturbance [Unknown]
  - Metastatic neoplasm [Unknown]
  - Mineral deficiency [Unknown]
  - Dehydration [Unknown]
  - Malaise [Unknown]
  - Bone disorder [Unknown]
  - Blood calcium abnormal [Unknown]
  - Tooth disorder [Recovered/Resolved]
  - Sensory loss [Unknown]
  - Dizziness [Unknown]
  - Feeling abnormal [Unknown]
  - Jaw disorder [Unknown]
